FAERS Safety Report 4800982-X (Version None)
Quarter: 2005Q4

REPORT INFORMATION
  Report Type: 
  Country: None (occurrence: None)
  Receive Date: 20051012
  Receipt Date: 20051005
  Transmission Date: 20060501
  Serious: Yes (Death, Hospitalization)
  Sender: FDA-Public Use
  Company Number: 2005137923

PATIENT
  Age: 70 Year
  Sex: Female

DRUGS (6)
  1. LIPITOR [Suspect]
     Indication: CORONARY ARTERY INSUFFICIENCY
     Dosage: 10 MG (10 MG, 1 IN 1 D), ORAL
     Route: 048
     Dates: start: 20040130
  2. CAPTOPRIL [Concomitant]
  3. PLAVIX [Concomitant]
  4. VALSARTAN [Concomitant]
  5. ANCORON (AMIODARONE HYDROCHLORIDE) [Concomitant]
  6. SIMVASTATIN [Concomitant]

REACTIONS (1)
  - MYOCARDIAL INFARCTION [None]
